FAERS Safety Report 9351579 (Version 1)
Quarter: 2013Q2

REPORT INFORMATION
  Report Type: Spontaneous
  Country: AU (occurrence: AU)
  Receive Date: 20130617
  Receipt Date: 20130617
  Transmission Date: 20140414
  Serious: Yes (Other)
  Sender: FDA-Public Use
  Company Number: PHHY2013AU060766

PATIENT
  Sex: 0

DRUGS (1)
  1. EXJADE [Suspect]
     Indication: CONGENITAL APLASTIC ANAEMIA
     Dosage: UNK
     Route: 048

REACTIONS (1)
  - Blood alkaline phosphatase increased [Unknown]
